FAERS Safety Report 6572552-7 (Version None)
Quarter: 2010Q1

REPORT INFORMATION
  Report Type: 
  Country: None (occurrence: None)
  Receive Date: 20100205
  Receipt Date: 20100127
  Transmission Date: 20100710
  Serious: Yes (Other)
  Sender: FDA-Public Use
  Company Number: BR-PFIZER INC-2010011066

PATIENT
  Age: 78 Year
  Sex: Female
  Weight: 52 kg

DRUGS (1)
  1. LIPITOR [Suspect]
     Dosage: 15 MG, 1X/DAY
     Route: 048
     Dates: start: 20090519, end: 20100101

REACTIONS (7)
  - BLOOD CHOLESTEROL ABNORMAL [None]
  - CONFUSIONAL STATE [None]
  - FATIGUE [None]
  - MALAISE [None]
  - PAIN [None]
  - PAIN IN EXTREMITY [None]
  - WEIGHT INCREASED [None]
